FAERS Safety Report 24532337 (Version 2)
Quarter: 2024Q4

REPORT INFORMATION
  Report Type: Spontaneous
  Country: GB (occurrence: GB)
  Receive Date: 20241022
  Receipt Date: 20241026
  Transmission Date: 20250115
  Serious: Yes (Life-Threatening, Disabling, Other)
  Sender: TEVA
  Company Number: None

PATIENT
  Age: 70 Year
  Sex: Male
  Weight: 85 kg

DRUGS (1)
  1. HALOPERIDOL [Suspect]
     Active Substance: HALOPERIDOL
     Dosage: THEY  WILL NOT TELL ME
     Route: 065

REACTIONS (3)
  - Blindness [Not Recovered/Not Resolved]
  - Product substitution issue [Unknown]
  - Medication error [Unknown]
